FAERS Safety Report 14834464 (Version 3)
Quarter: 2020Q2

REPORT INFORMATION
  Report Type: Spontaneous
  Country: US (occurrence: US)
  Receive Date: 20180501
  Receipt Date: 20200409
  Transmission Date: 20200713
  Serious: Yes (Death, Hospitalization, Other)
  Sender: FDA-Public Use
  Company Number: US-009507513-1804USA013252

PATIENT
  Sex: Male
  Weight: 108.84 kg

DRUGS (5)
  1. VICTOZA [Suspect]
     Active Substance: LIRAGLUTIDE
     Dosage: 18MG/3ML; 1.8 ML DAILY EVERY MORNING
     Route: 058
     Dates: start: 20150314, end: 201512
  2. BYDUREON [Suspect]
     Active Substance: EXENATIDE
     Indication: TYPE 2 DIABETES MELLITUS
     Dosage: 2 MILLIGRAM VIAL, WEEKLY
     Dates: start: 20120803, end: 201502
  3. JANUVIA [Suspect]
     Active Substance: SITAGLIPTIN PHOSPHATE
     Indication: TYPE 2 DIABETES MELLITUS
     Dosage: UNK
     Route: 048
     Dates: start: 200808
  4. BYETTA [Suspect]
     Active Substance: EXENATIDE
     Indication: TYPE 2 DIABETES MELLITUS
     Dosage: UNK
     Dates: start: 2008
  5. VICTOZA [Suspect]
     Active Substance: LIRAGLUTIDE
     Indication: TYPE 2 DIABETES MELLITUS
     Dosage: 18MG/3ML; 1.8 ML DAILY EVERY MORNING
     Route: 058
     Dates: start: 20100510, end: 201206

REACTIONS (49)
  - Malignant pleural effusion [Unknown]
  - Bradycardia [Unknown]
  - Night sweats [Unknown]
  - Rales [Unknown]
  - Oedema peripheral [Unknown]
  - Hyperlipidaemia [Not Recovered/Not Resolved]
  - Metastases to pleura [Unknown]
  - Mitral valve incompetence [Unknown]
  - Muscle atrophy [Unknown]
  - Hyponatraemia [Unknown]
  - Left ventricular dysfunction [Unknown]
  - Constipation [Unknown]
  - Blood cholesterol increased [Not Recovered/Not Resolved]
  - Electrocardiogram QRS complex prolonged [Unknown]
  - Cancer pain [Unknown]
  - Oxygen saturation decreased [Recovered/Resolved]
  - Blood cholesterol abnormal [Not Recovered/Not Resolved]
  - Abnormal loss of weight [Not Recovered/Not Resolved]
  - Pancreatic carcinoma metastatic [Fatal]
  - Ascites [Unknown]
  - Metastases to lung [Unknown]
  - Pancreatitis [Not Recovered/Not Resolved]
  - Left ventricular hypertrophy [Unknown]
  - Leukocytosis [Unknown]
  - Ventricular extrasystoles [Unknown]
  - Metastases to liver [Unknown]
  - Pulmonary embolism [Unknown]
  - Neuropathy peripheral [Not Recovered/Not Resolved]
  - Atelectasis [Unknown]
  - Atrial enlargement [Unknown]
  - Diastolic dysfunction [Unknown]
  - Vomiting [Not Recovered/Not Resolved]
  - Metastases to peritoneum [Unknown]
  - Tricuspid valve incompetence [Unknown]
  - Retroperitoneal lymphadenopathy [Unknown]
  - Hilar lymphadenopathy [Unknown]
  - Hypoglycaemia [Not Recovered/Not Resolved]
  - Blood triglycerides increased [Not Recovered/Not Resolved]
  - Nausea [Not Recovered/Not Resolved]
  - Inappropriate antidiuretic hormone secretion [Unknown]
  - Gastrointestinal disorder [Unknown]
  - Carpal tunnel syndrome [Unknown]
  - Adverse event [Unknown]
  - Hypercholesterolaemia [Not Recovered/Not Resolved]
  - Metastases to lymph nodes [Unknown]
  - QRS axis abnormal [Unknown]
  - Chondrocalcinosis pyrophosphate [Unknown]
  - Hyperglycaemia [Not Recovered/Not Resolved]
  - Abdominal pain [Not Recovered/Not Resolved]

NARRATIVE: CASE EVENT DATE: 20150313
